FAERS Safety Report 25600539 (Version 1)
Quarter: 2025Q3

REPORT INFORMATION
  Report Type: Spontaneous
  Country: US (occurrence: None)
  Receive Date: 20250723
  Receipt Date: 20250723
  Transmission Date: 20251020
  Serious: Yes (Hospitalization)
  Sender: FDA-CTU
  Company Number: None

PATIENT
  Sex: Female

DRUGS (1)
  1. SKYRIZI [Suspect]
     Active Substance: RISANKIZUMAB-RZAA
     Indication: Psoriasis
     Route: 058
     Dates: start: 20240612

REACTIONS (7)
  - Therapy non-responder [None]
  - Somnolence [None]
  - Arthritis [None]
  - Arthritis [None]
  - Balance disorder [None]
  - Femur fracture [None]
  - Hip fracture [None]
